FAERS Safety Report 4403438-1 (Version None)
Quarter: 2004Q3

REPORT INFORMATION
  Report Type: 
  Country: None (occurrence: None)
  Receive Date: 20040720
  Receipt Date: 20040707
  Transmission Date: 20050211
  Serious: Yes (Other)
  Sender: FDA-Public Use
  Company Number: HQWYE552922JUN04

PATIENT
  Age: 42 Year
  Sex: Female
  Weight: 106.69 kg

DRUGS (3)
  1. EFFEXOR XR [Suspect]
     Indication: DEPRESSION
     Dosage: 300 MG 1X PER 1 DAY, ORAL ^ TAPERED HER DOSE FROM 300 MG DAILY TO 37.5 MG DAILY^, ORAL
     Route: 048
     Dates: start: 20001201, end: 20020101
  2. EFFEXOR XR [Suspect]
     Indication: DEPRESSION
     Dosage: 300 MG 1X PER 1 DAY, ORAL ^ TAPERED HER DOSE FROM 300 MG DAILY TO 37.5 MG DAILY^, ORAL
     Route: 048
     Dates: start: 20020101, end: 20021201
  3. DIOVAN HCT [Concomitant]

REACTIONS (11)
  - ASTHENIA [None]
  - BRUXISM [None]
  - CHEST PAIN [None]
  - DISTURBANCE IN ATTENTION [None]
  - DRUG DEPENDENCE [None]
  - DRUG WITHDRAWAL SYNDROME [None]
  - DYSPHEMIA [None]
  - HEART RATE INCREASED [None]
  - PRESSURE OF SPEECH [None]
  - SPEECH DISORDER [None]
  - VISION BLURRED [None]
